FAERS Safety Report 10012205 (Version 4)
Quarter: 2014Q2

REPORT INFORMATION
  Report Type: Report from Study
  Country: NL (occurrence: NL)
  Receive Date: 20140314
  Receipt Date: 20140414
  Transmission Date: 20141212
  Serious: Yes (Other)
  Sender: FDA-Public Use
  Company Number: NL-GLAXOSMITHKLINE-Z0022074B

PATIENT
  Age: 89 Year
  Sex: Female
  Weight: 63 kg

DRUGS (7)
  1. DABRAFENIB [Suspect]
     Indication: NON-SMALL CELL LUNG CANCER
     Dosage: 150MG TWICE PER DAY
     Route: 048
     Dates: start: 20131220
  2. CALCICHEW [Concomitant]
     Indication: PROPHYLAXIS
     Dosage: 500MG PER DAY
     Route: 048
     Dates: start: 1998
  3. METOPROLOL [Concomitant]
     Indication: HYPERTENSION
     Dosage: 100MG TWICE PER DAY
     Route: 048
     Dates: start: 20060109
  4. MICARDIS PLUS [Concomitant]
     Indication: HYPERTENSION
     Route: 048
     Dates: start: 20051117
  5. PARACETAMOL [Concomitant]
     Indication: PAIN
     Dosage: 1000MG AS REQUIRED
     Route: 048
     Dates: start: 20131112
  6. ZOFRAN [Concomitant]
     Indication: NAUSEA
     Dosage: 8MG AS REQUIRED
     Route: 048
     Dates: start: 20131120
  7. PREDNISON [Concomitant]
     Indication: PYREXIA
     Dosage: 10MG PER DAY
     Route: 048
     Dates: start: 20140303

REACTIONS (1)
  - Ejection fraction decreased [Recovered/Resolved with Sequelae]
